FAERS Safety Report 6999993-8 (Version None)
Quarter: 2010Q3

REPORT INFORMATION
  Report Type: 
  Country: None (occurrence: None)
  Receive Date: 20100920
  Receipt Date: 20071002
  Transmission Date: 20110219
  Serious: Yes (Other)
  Sender: FDA-Public Use
  Company Number: US-ASTRAZENECA-2006UW21745

PATIENT
  Age: 41 Year
  Sex: Female
  Weight: 84.4 kg

DRUGS (13)
  1. SEROQUEL [Suspect]
     Indication: BIPOLAR DISORDER
     Route: 048
     Dates: start: 19970101, end: 20070101
  2. SEROQUEL [Suspect]
     Indication: DEPRESSION
     Route: 048
     Dates: start: 19970101, end: 20070101
  3. SEROQUEL [Suspect]
     Indication: ANXIETY
     Route: 048
     Dates: start: 19970101, end: 20070101
  4. SEROQUEL [Suspect]
     Route: 048
     Dates: start: 19990208
  5. SEROQUEL [Suspect]
     Route: 048
     Dates: start: 19990208
  6. SEROQUEL [Suspect]
     Route: 048
     Dates: start: 19990208
  7. ABILIFY [Concomitant]
  8. PAXIL [Concomitant]
     Route: 048
     Dates: start: 19990208
  9. PREMARIN [Concomitant]
     Route: 048
     Dates: start: 20000619
  10. SERZONE [Concomitant]
     Route: 048
     Dates: start: 20000619
  11. LORTAB [Concomitant]
     Dosage: 10/650
     Route: 048
     Dates: start: 20000619
  12. RESTORIL [Concomitant]
     Route: 048
     Dates: start: 20021023
  13. XANAX [Concomitant]
     Route: 048
     Dates: start: 20020909

REACTIONS (4)
  - DIABETES MELLITUS [None]
  - PANCREATITIS [None]
  - PANCREATITIS ACUTE [None]
  - PANCREATITIS RELAPSING [None]
